FAERS Safety Report 8580177-7 (Version None)
Quarter: 2012Q3

REPORT INFORMATION
  Report Type: 
  Country: None (occurrence: None)
  Receive Date: 20120808
  Receipt Date: 20120803
  Transmission Date: 20120928
  Serious: Yes (Hospitalization, Other)
  Sender: FDA-Public Use
  Company Number: US-GILEAD-2012-0056822

PATIENT
  Sex: Female

DRUGS (2)
  1. LETAIRIS [Suspect]
     Indication: PULMONARY HYPERTENSION
     Dosage: 10 MG, UNK
     Route: 048
     Dates: start: 20120511
  2. LETAIRIS [Suspect]
     Indication: PULMONARY FIBROSIS

REACTIONS (11)
  - HAEMOPTYSIS [None]
  - CHEST PAIN [None]
  - HEADACHE [None]
  - DYSPNOEA [None]
  - LOCAL SWELLING [None]
  - NASAL DRYNESS [None]
  - FATIGUE [None]
  - DIZZINESS [None]
  - THROMBOSIS [None]
  - JUGULAR VEIN DISTENSION [None]
  - PAIN IN EXTREMITY [None]
